FAERS Safety Report 5414389-8 (Version None)
Quarter: 2007Q3

REPORT INFORMATION
  Report Type: 
  Country: None (occurrence: None)
  Receive Date: 20070814
  Receipt Date: 20070806
  Transmission Date: 20080115
  Serious: Yes (Other)
  Sender: FDA-Public Use
  Company Number: US-SHR-US-2007-018849

PATIENT
  Age: 56 Year
  Sex: Male

DRUGS (3)
  1. BETASERON [Suspect]
     Indication: RELAPSING-REMITTING MULTIPLE SCLEROSIS
     Dosage: 8 MIU, EVERY 2D
     Route: 058
     Dates: start: 20070203
  2. SOLU-MEDROL [Concomitant]
     Route: 042
  3. CORTICOSTEROIDS [Concomitant]
     Route: 048

REACTIONS (7)
  - COGNITIVE DISORDER [None]
  - FATIGUE [None]
  - INFLUENZA LIKE ILLNESS [None]
  - MALAISE [None]
  - MENIERE'S DISEASE [None]
  - MIGRAINE [None]
  - MULTIPLE SCLEROSIS [None]
